FAERS Safety Report 9555928 (Version 1)
Quarter: 2013Q3

REPORT INFORMATION
  Report Type: Spontaneous
  Country: US (occurrence: None)
  Receive Date: 20130726
  Receipt Date: 20130726
  Transmission Date: 20140515
  Serious: Yes (Hospitalization)
  Sender: FDA-Public Use
  Company Number: UTC-023853

PATIENT
  Age: 57 Year
  Sex: Female
  Weight: 88.2 kg

DRUGS (7)
  1. REMODULIN [Suspect]
     Indication: PULMONARY ARTERIAL HYPERTENSION
     Dates: start: 20091110
  2. ADCIRCA (TADALAFIL) [Concomitant]
  3. COUMADIN (WARFARIN SODIUM) [Concomitant]
  4. TRACLEER (BOSENTAN) [Concomitant]
  5. VENTAVIS (ILOPROST) [Concomitant]
  6. OXYGEN [Concomitant]
  7. AMLODIPINE [Concomitant]

REACTIONS (1)
  - Device related infection [None]
